FAERS Safety Report 12282419 (Version 2)
Quarter: 2016Q3

REPORT INFORMATION
  Report Type: Report from Study
  Country: DE (occurrence: DE)
  Receive Date: 20160419
  Receipt Date: 20160721
  Transmission Date: 20161109
  Serious: Yes (Hospitalization)
  Sender: FDA-Public Use
  Company Number: DE-ABBVIE-16K-062-1576376-00

PATIENT
  Age: 28 Year
  Sex: Female

DRUGS (5)
  1. SALOFALK [Concomitant]
     Active Substance: MESALAMINE
     Indication: PRODUCT USED FOR UNKNOWN INDICATION
  2. PREDNISOLONE. [Concomitant]
     Active Substance: PREDNISOLONE
     Indication: PRODUCT USED FOR UNKNOWN INDICATION
  3. VITAMIN B [Concomitant]
     Active Substance: VITAMIN B
     Indication: PRODUCT USED FOR UNKNOWN INDICATION
  4. IRON [Concomitant]
     Active Substance: IRON
     Indication: PRODUCT USED FOR UNKNOWN INDICATION
  5. HUMIRA [Suspect]
     Active Substance: ADALIMUMAB
     Indication: COLITIS ULCERATIVE
     Route: 058
     Dates: start: 20160112, end: 20160711

REACTIONS (6)
  - Abdominal pain [Recovering/Resolving]
  - Exposure during pregnancy [Unknown]
  - Premature labour [Recovering/Resolving]
  - Diarrhoea [Recovering/Resolving]
  - Clostridial infection [Recovering/Resolving]
  - Normal newborn [Unknown]

NARRATIVE: CASE EVENT DATE: 20160329
